FAERS Safety Report 25875949 (Version 1)
Quarter: 2025Q4

REPORT INFORMATION
  Report Type: Spontaneous
  Country: US (occurrence: US)
  Receive Date: 20251003
  Receipt Date: 20251003
  Transmission Date: 20260119
  Serious: No
  Sender: GLAXOSMITHKLINE
  Company Number: US-GSK-US2025123093

PATIENT
  Sex: Male

DRUGS (1)
  1. NUCALA [Suspect]
     Active Substance: MEPOLIZUMAB
     Indication: Asthma
     Dosage: 40 MG, Q4W
     Dates: start: 202202

REACTIONS (2)
  - Asthma [Unknown]
  - Nasopharyngitis [Unknown]
